FAERS Safety Report 8906475 (Version 1)
Quarter: 2012Q4

REPORT INFORMATION
  Report Type: Spontaneous
  Country: US (occurrence: None)
  Receive Date: 20121113
  Receipt Date: 20121113
  Transmission Date: 20130627
  Serious: Yes (Other)
  Sender: FDA-Public Use
  Company Number: None

PATIENT
  Age: 43 Year
  Sex: Male
  Weight: 90.72 kg

DRUGS (1)
  1. FENTANYL [Suspect]
     Indication: PAIN
     Dosage: every 72 hours
     Route: 062
     Dates: start: 20121102, end: 20121105

REACTIONS (3)
  - Device malfunction [None]
  - Serotonin syndrome [None]
  - Product quality issue [None]
